FAERS Safety Report 10506802 (Version 1)
Quarter: 2014Q4

REPORT INFORMATION
  Report Type: Spontaneous
  Country: US (occurrence: None)
  Receive Date: 20141007
  Receipt Date: 20141007
  Transmission Date: 20150528
  Serious: Yes (Hospitalization, Other)
  Sender: FDA-Public Use
  Company Number: 2014-US-012482

PATIENT
  Age: 58 Year
  Sex: Female

DRUGS (4)
  1. XYREM [Suspect]
     Active Substance: SODIUM OXYBATE
     Indication: NARCOLEPSY
     Route: 048
     Dates: start: 200809
  2. GABAPENTIN. [Concomitant]
     Active Substance: GABAPENTIN
  3. KEPPRA [Concomitant]
     Active Substance: LEVETIRACETAM
  4. XYREM [Suspect]
     Active Substance: SODIUM OXYBATE
     Indication: SOMNOLENCE
     Route: 048
     Dates: start: 200809

REACTIONS (8)
  - Multiple allergies [None]
  - Drug ineffective [None]
  - Visual impairment [None]
  - Wrong technique in drug usage process [None]
  - Chest pain [None]
  - Dyspnoea [None]
  - Seizure [None]
  - Hypersensitivity [None]

NARRATIVE: CASE EVENT DATE: 201408
